FAERS Safety Report 13921423 (Version 2)
Quarter: 2017Q3

REPORT INFORMATION
  Report Type: Spontaneous
  Country: US (occurrence: US)
  Receive Date: 20170830
  Receipt Date: 20170911
  Transmission Date: 20171127
  Serious: No
  Sender: FDA-Public Use
  Company Number: PHEH2017US026847

PATIENT
  Age: 43 Year
  Sex: Female
  Weight: 80.73 kg

DRUGS (2)
  1. AMOXICILLIN CAPSULES, USP [Suspect]
     Active Substance: AMOXICILLIN
     Indication: SINUSITIS
     Dosage: 1 DF, TID
     Route: 048
     Dates: start: 20170810, end: 20170817
  2. SYNTHROID [Concomitant]
     Active Substance: LEVOTHYROXINE SODIUM
     Indication: HYPOTHYROIDISM
     Dosage: UNK UNK, QD
     Route: 048
     Dates: start: 20161225

REACTIONS (5)
  - Nausea [Recovered/Resolved]
  - Feeling jittery [Unknown]
  - Rash [Recovered/Resolved]
  - Constipation [Recovered/Resolved]
  - Insomnia [Recovered/Resolved]

NARRATIVE: CASE EVENT DATE: 20170817
